FAERS Safety Report 5263835-1 (Version None)
Quarter: 2007Q1

REPORT INFORMATION
  Report Type: 
  Country: None (occurrence: None)
  Receive Date: 20070313
  Receipt Date: 20070302
  Transmission Date: 20070707
  Serious: Yes (Death)
  Sender: FDA-Public Use
  Company Number: FR-GLAXOSMITHKLINE-B0460753A

PATIENT
  Age: 59 Year
  Sex: Male
  Weight: 120 kg

DRUGS (3)
  1. AVANDAMET [Suspect]
     Dosage: 1TAB PER DAY
     Route: 048
     Dates: start: 20050530, end: 20070201
  2. BIPRETERAX [Concomitant]
     Dosage: 1TAB PER DAY
     Route: 048
  3. GLYBURIDE [Concomitant]
     Dosage: 5MG THREE TIMES PER DAY
     Route: 048
     Dates: start: 20030101

REACTIONS (2)
  - CARDIAC ARREST [None]
  - SUDDEN DEATH [None]
